FAERS Safety Report 9106021 (Version 2)
Quarter: 2013Q1

REPORT INFORMATION
  Report Type: Report from Study
  Country: US (occurrence: US)
  Receive Date: 20130220
  Receipt Date: 20130228
  Transmission Date: 20140127
  Serious: Yes (Life-Threatening, Hospitalization)
  Sender: FDA-Public Use
  Company Number: US-US-EMD SERONO, INC.-7193938

PATIENT
  Age: 27 Year
  Sex: Female

DRUGS (5)
  1. REBIF [Suspect]
     Indication: RELAPSING-REMITTING MULTIPLE SCLEROSIS
     Route: 058
     Dates: start: 20120703, end: 20130212
  2. PROZAC [Suspect]
     Indication: DEPRESSION
     Route: 048
     Dates: start: 20121210, end: 20130121
  3. ACYCLOVIR [Concomitant]
     Indication: HERPES SIMPLEX
     Route: 048
     Dates: start: 20121015
  4. VITAMIN D3 [Concomitant]
     Indication: VITAMIN D DEFICIENCY
     Route: 048
     Dates: start: 20120101
  5. VITAMIN D3 [Concomitant]
     Indication: MULTIPLE SCLEROSIS

REACTIONS (3)
  - Suicide attempt [Recovered/Resolved]
  - Depression [Recovered/Resolved]
  - Intentional overdose [Recovered/Resolved]
